FAERS Safety Report 23771865 (Version 2)
Quarter: 2025Q2

REPORT INFORMATION
  Report Type: Spontaneous
  Country: US (occurrence: US)
  Receive Date: 20240423
  Receipt Date: 20250516
  Transmission Date: 20250716
  Serious: Yes (Other)
  Sender: AUROBINDO
  Company Number: US-AUROBINDO-AUR-APL-2024-017668

PATIENT
  Age: 77 Year
  Sex: Male

DRUGS (2)
  1. ADENOSINE [Suspect]
     Active Substance: ADENOSINE
     Indication: Coronary artery disease
     Route: 065
  2. ADENOSINE [Suspect]
     Active Substance: ADENOSINE
     Route: 065

REACTIONS (2)
  - Coronary steal syndrome [Unknown]
  - Ventricular fibrillation [Unknown]
